FAERS Safety Report 15766885 (Version 1)
Quarter: 2018Q4

REPORT INFORMATION
  Report Type: Spontaneous
  Country: US (occurrence: US)
  Receive Date: 20181227
  Receipt Date: 20181227
  Transmission Date: 20190205
  Serious: Yes (Other)
  Sender: FDA-Public Use
  Company Number: US-TEVA-2018-US-991353

PATIENT
  Sex: Female
  Weight: 117.93 kg

DRUGS (2)
  1. GABAPENTIN. [Concomitant]
     Active Substance: GABAPENTIN
  2. TORASEMIDE [Suspect]
     Active Substance: TORSEMIDE
     Route: 065

REACTIONS (5)
  - Pain [Recovering/Resolving]
  - Gait disturbance [Recovering/Resolving]
  - Cerebrovascular accident [Unknown]
  - Monoplegia [Recovering/Resolving]
  - Peripheral swelling [Recovering/Resolving]
